FAERS Safety Report 17133349 (Version 1)
Quarter: 2019Q4

REPORT INFORMATION
  Report Type: Spontaneous
  Country: US (occurrence: US)
  Receive Date: 20191210
  Receipt Date: 20191210
  Transmission Date: 20200122
  Serious: No
  Sender: FDA-Public Use
  Company Number: US-UCBSA-2016034862

PATIENT
  Sex: Female

DRUGS (1)
  1. LEVETIRACETAM. [Suspect]
     Active Substance: LEVETIRACETAM
     Indication: NEURALGIA
     Dosage: UNK
     Dates: start: 20160905

REACTIONS (3)
  - Drug ineffective for unapproved indication [Unknown]
  - Intentional product misuse [Unknown]
  - Nasal disorder [Unknown]

NARRATIVE: CASE EVENT DATE: 20160905
